FAERS Safety Report 5972356-X (Version None)
Quarter: 2008Q4

REPORT INFORMATION
  Report Type: 
  Country: None (occurrence: None)
  Receive Date: 20081201
  Receipt Date: 20080108
  Transmission Date: 20090506
  Serious: No
  Sender: FDA-Public Use
  Company Number: US-AMGEN-KDL259655

PATIENT
  Sex: Female

DRUGS (2)
  1. ENBREL [Suspect]
     Indication: RHEUMATOID ARTHRITIS
     Route: 058
     Dates: start: 19990101
  2. METHOTREXATE [Concomitant]

REACTIONS (6)
  - ARTHRALGIA [None]
  - BURSA DISORDER [None]
  - JOINT EFFUSION [None]
  - NASOPHARYNGITIS [None]
  - NODULE [None]
  - PYREXIA [None]
